FAERS Safety Report 7556521-6 (Version None)
Quarter: 2011Q2

REPORT INFORMATION
  Report Type: 
  Country: None (occurrence: None)
  Receive Date: 20110609
  Receipt Date: 20110117
  Transmission Date: 20111010
  Serious: Yes (Hospitalization)
  Sender: FDA-Public Use
  Company Number: WAES 1012USA03436

PATIENT
  Age: 65 Year
  Sex: Female

DRUGS (11)
  1. BORTEZOMIB [Suspect]
     Indication: MULTIPLE MYELOMA
     Dosage: 1.75 MG/DAILY IV; 1.0 MG/M[2] /DAILY IV
     Route: 042
     Dates: start: 20110103
  2. BORTEZOMIB [Suspect]
     Indication: MULTIPLE MYELOMA
     Dosage: 1.75 MG/DAILY IV; 1.0 MG/M[2] /DAILY IV
     Route: 042
     Dates: start: 20100201, end: 20101213
  3. FRAXODI [Concomitant]
  4. NOVALGIN [Concomitant]
  5. BLOOD CELLS, RED [Concomitant]
  6. DECADRON [Suspect]
     Indication: MULTIPLE MYELOMA
     Dosage: 20 MG/ PO
     Route: 048
     Dates: start: 20100503, end: 20101214
  7. DECADRON [Suspect]
     Indication: MULTIPLE MYELOMA
     Dosage: 20 MG/ PO
     Route: 048
     Dates: start: 20110103
  8. CAP VORINOSTAT [Suspect]
     Indication: MULTIPLE MYELOMA
     Dosage: 300 MG/DAILY PO
     Route: 048
     Dates: start: 20100201, end: 20101226
  9. CAP VORINOSTAT [Suspect]
     Indication: MULTIPLE MYELOMA
     Dosage: 300 MG/DAILY PO
     Route: 048
     Dates: start: 20110103
  10. CIPROFLOXACIN [Concomitant]
  11. MAGNESIUM (UNSPECIFIED) [Concomitant]

REACTIONS (1)
  - LOBAR PNEUMONIA [None]
